FAERS Safety Report 9092596 (Version 4)
Quarter: 2013Q2

REPORT INFORMATION
  Report Type: Report from Study
  Country: US (occurrence: US)
  Receive Date: 20130201
  Receipt Date: 20130613
  Transmission Date: 20140414
  Serious: Yes (Death, Other)
  Sender: FDA-Public Use
  Company Number: US-BAYER-2013-001595

PATIENT
  Age: 81 Year
  Sex: Male
  Weight: 54.88 kg

DRUGS (10)
  1. NEXAVAR [Suspect]
     Indication: HEPATIC CANCER
     Dosage: 200 MG, BID
     Route: 048
     Dates: start: 20121201
  2. NEXAVAR [Suspect]
     Indication: HEPATIC CANCER
     Dosage: 02 TABLETS IN AM AND 01 TABLET IN PM
     Route: 048
     Dates: start: 20121208
  3. NEXAVAR [Suspect]
     Indication: HEPATIC CANCER
     Dosage: 400 MG, BID
     Route: 048
     Dates: start: 20121215, end: 20130122
  4. NEXAVAR [Suspect]
     Indication: HEPATIC CANCER
     Dosage: 400 MG, BID
     Route: 048
  5. EMOLLIENTS AND PROTECTIVES [Concomitant]
  6. IMODIUM [Concomitant]
     Dosage: 2 MG
  7. MULTIVITE [VITAMINS NOS] [Concomitant]
  8. HYZAAR [Concomitant]
     Dosage: TAB 100-12.5
  9. FERROUS SULFATE [Concomitant]
     Dosage: 325 MG
  10. PEPCID AC [Concomitant]
     Dosage: 10

REACTIONS (17)
  - Hepatocellular carcinoma [Fatal]
  - Weight decreased [Not Recovered/Not Resolved]
  - Faecal incontinence [None]
  - Jaundice [Unknown]
  - Decreased appetite [Unknown]
  - Skin discolouration [None]
  - Miliaria [Recovering/Resolving]
  - Diarrhoea [Recovering/Resolving]
  - Flatulence [Recovering/Resolving]
  - Epistaxis [Not Recovered/Not Resolved]
  - Blood pressure decreased [None]
  - Faeces discoloured [Not Recovered/Not Resolved]
  - Asthenia [Unknown]
  - Fatigue [Unknown]
  - Rash [Unknown]
  - Pruritus generalised [Unknown]
  - Diarrhoea [Unknown]
